FAERS Safety Report 7282705-0 (Version None)
Quarter: 2010Q4

REPORT INFORMATION
  Report Type: 
  Country: None (occurrence: None)
  Receive Date: 20101221
  Receipt Date: 20091210
  Transmission Date: 20110411
  Serious: Yes (Life-Threatening)
  Sender: FDA-Public Use
  Company Number: WAES 0912USA01622

PATIENT
  Sex: Male

DRUGS (10)
  1. JANUVIA [Suspect]
     Indication: PRODUCT USED FOR UNKNOWN INDICATION
     Dosage: PO
     Route: 048
     Dates: start: 20090325
  2. BENICAR [Concomitant]
  3. FLONASE [Concomitant]
  4. GLUCOTROL XL [Concomitant]
  5. KLONOPIN [Concomitant]
  6. PAXIL [Concomitant]
  7. PRILOSEC [Concomitant]
  8. ASPIRIN [Concomitant]
  9. NIACIN [Concomitant]
  10. OMEGA-3 MARINE TRIGLYCERIDES [Concomitant]

REACTIONS (3)
  - ABDOMINAL PAIN [None]
  - CONSTIPATION [None]
  - PANCREATITIS ACUTE [None]
